FAERS Safety Report 7948847-9 (Version None)
Quarter: 2011Q4

REPORT INFORMATION
  Report Type: 
  Country: None (occurrence: None)
  Receive Date: 20111130
  Receipt Date: 20111117
  Transmission Date: 20120403
  Serious: Yes (Other)
  Sender: FDA-Public Use
  Company Number: PHHY2011CA81190

PATIENT
  Sex: Female

DRUGS (3)
  1. SANDOSTATIN LAR [Suspect]
     Dosage: 60 MG EVERY 4 WEEKS
     Route: 030
  2. AFINITOR [Suspect]
     Indication: NEUROENDOCRINE TUMOUR
     Dosage: 10 MG,EVERY DAY
     Route: 048
     Dates: start: 20110929, end: 20111101
  3. SANDOSTATIN LAR [Suspect]
     Indication: NEUROENDOCRINE TUMOUR
     Dosage: 60 MG, QMO
     Route: 030
     Dates: start: 20060101

REACTIONS (4)
  - ARTHRALGIA [None]
  - INJECTION SITE PAIN [None]
  - MUSCLE DISORDER [None]
  - PAIN IN EXTREMITY [None]
